FAERS Safety Report 8386490-0 (Version None)
Quarter: 2012Q2

REPORT INFORMATION
  Report Type: 
  Country: None (occurrence: None)
  Receive Date: 20120525
  Receipt Date: 20120518
  Transmission Date: 20120825
  Serious: Yes (Hospitalization, Other)
  Sender: FDA-Public Use
  Company Number: US-AMGEN-USASP2012022186

PATIENT
  Age: 57 Year
  Sex: Female

DRUGS (1)
  1. ENBREL [Suspect]
     Indication: RHEUMATOID ARTHRITIS
     Dosage: 50 MG, QWK
     Dates: start: 20120301, end: 20120408

REACTIONS (10)
  - BLOOD UREA INCREASED [None]
  - FEELING ABNORMAL [None]
  - OXYGEN SATURATION DECREASED [None]
  - PNEUMONIA [None]
  - NAIL DISORDER [None]
  - RENAL FAILURE ACUTE [None]
  - COUGH [None]
  - PNEUMOCYSTIS JIROVECI PNEUMONIA [None]
  - FATIGUE [None]
  - BLOOD CREATININE INCREASED [None]
